FAERS Safety Report 22259683 (Version 2)
Quarter: 2023Q2

REPORT INFORMATION
  Report Type: Spontaneous
  Country: US (occurrence: US)
  Receive Date: 20230427
  Receipt Date: 20230522
  Transmission Date: 20230722
  Serious: Yes (Hospitalization)
  Sender: FDA-Public Use
  Company Number: US-JNJFOC-20230460353

PATIENT
  Sex: Female

DRUGS (11)
  1. OPSUMIT [Suspect]
     Active Substance: MACITENTAN
     Indication: Product used for unknown indication
     Route: 048
  2. SILDENAFIL [Concomitant]
     Active Substance: SILDENAFIL
     Indication: Pulmonary hypertension
     Dates: start: 20230403
  3. ALBUTEROL [Concomitant]
     Active Substance: ALBUTEROL
     Dates: start: 202204
  4. JANUVIA [Concomitant]
     Active Substance: SITAGLIPTIN PHOSPHATE
     Indication: Diabetes mellitus
  5. METFORMIN [Concomitant]
     Active Substance: METFORMIN HYDROCHLORIDE
     Indication: Diabetes mellitus
  6. LANSOPRAZOLE [Concomitant]
     Active Substance: LANSOPRAZOLE
     Indication: Gastrooesophageal reflux disease
  7. SPIRONOLACTONE [Concomitant]
     Active Substance: SPIRONOLACTONE
  8. FUROSEMIDE [Concomitant]
     Active Substance: FUROSEMIDE
     Dates: start: 202304
  9. OXYGEN [Concomitant]
     Active Substance: OXYGEN
     Dates: start: 202204
  10. GLUCOMINE [ASCORBIC ACID;GLUCOSAMINE SULFATE] [Concomitant]
     Indication: Pain
  11. FLUTICASONE [Concomitant]
     Active Substance: FLUTICASONE
     Dates: start: 202303

REACTIONS (1)
  - Hospitalisation [Unknown]
